FAERS Safety Report 5361247-3 (Version None)
Quarter: 2007Q2

REPORT INFORMATION
  Report Type: 
  Country: None (occurrence: None)
  Receive Date: 20070614
  Receipt Date: 20070601
  Transmission Date: 20071010
  Serious: Yes (Death, Hospitalization)
  Sender: FDA-Public Use
  Company Number: 2007-01049

PATIENT
  Age: 63 Year
  Sex: Male

DRUGS (19)
  1. VELCADE [Suspect]
     Indication: MULTIPLE MYELOMA
     Dosage: 1.30 MG/M2
     Dates: start: 20070320
  2. DEXAMETHASONE 0.5MG TAB [Concomitant]
  3. BISOPROLOL FUMARATE [Concomitant]
  4. ALDACTONE [Concomitant]
  5. LANSOPRAZOLE [Concomitant]
  6. FENTANYL [Concomitant]
  7. ALLOPURINOL [Concomitant]
  8. SULFAMETHOXAZOLE + TRIMETHOPRIM [Concomitant]
  9. ITRACONAZOLE [Concomitant]
  10. DIOVAN [Concomitant]
  11. DESYREL [Concomitant]
  12. LASIX [Concomitant]
  13. SODIUM BICARBONATE [Concomitant]
  14. DENOSINE (ADENOSINE TRIPHOSPHATE) [Concomitant]
  15. NORVASC [Concomitant]
  16. SILECE (FLUNITRAZEPAM) [Concomitant]
  17. TETRAMIDE (MIANSERIN HYDROCHLORIDE) [Concomitant]
  18. URALYT (MAGNESIUM PHOSPHATE, ARNICA EXTRACE, EQUISETUM ARVENSE, SOLIGA [Concomitant]
  19. MAGNESIUM OXIDE (MAGNESIUM OXIDE) [Concomitant]

REACTIONS (8)
  - ANAEMIA [None]
  - CONSTIPATION [None]
  - CYTOMEGALOVIRUS INFECTION [None]
  - DISEASE PROGRESSION [None]
  - NAUSEA [None]
  - PNEUMONIA CYTOMEGALOVIRAL [None]
  - RENAL FAILURE [None]
  - SEPSIS [None]
